FAERS Safety Report 24196655 (Version 1)
Quarter: 2024Q3

REPORT INFORMATION
  Report Type: Report from Study
  Country: GB (occurrence: GB)
  Receive Date: 20240810
  Receipt Date: 20240810
  Transmission Date: 20241017
  Serious: Yes (Other)
  Sender: ABBVIE
  Company Number: GB-ABBVIE-5748218

PATIENT
  Age: 62 Year
  Sex: Female

DRUGS (1)
  1. SKYRIZI [Suspect]
     Active Substance: RISANKIZUMAB-RZAA
     Indication: Psoriasis
     Dosage: FORM STRENGTH: 150 MILLIGRAM, ?DRUG END DATE 2024
     Route: 058
     Dates: start: 20240124

REACTIONS (4)
  - Neck mass [Unknown]
  - Castleman^s disease [Unknown]
  - Pain [Unknown]
  - Tenderness [Unknown]

NARRATIVE: CASE EVENT DATE: 20240101
